FAERS Safety Report 9466557 (Version 2)
Quarter: 2013Q3

REPORT INFORMATION
  Report Type: Spontaneous
  Country: AU (occurrence: AU)
  Receive Date: 20130820
  Receipt Date: 20130909
  Transmission Date: 20140515
  Serious: Yes (Other)
  Sender: FDA-Public Use
  Company Number: AU-ROCHE-1264291

PATIENT
  Sex: Male

DRUGS (5)
  1. PEGASYS [Suspect]
     Indication: HEPATITIS C
     Route: 058
     Dates: start: 20120316, end: 20130215
  2. RIBAVIRIN [Suspect]
     Indication: HEPATITIS C
     Route: 048
     Dates: start: 20120316, end: 20130215
  3. LIPITOR [Concomitant]
  4. PARIET [Concomitant]
  5. ASPIRIN [Concomitant]

REACTIONS (1)
  - Parkinson^s disease [Not Recovered/Not Resolved]
